FAERS Safety Report 9164696 (Version 2)
Quarter: 2013Q1

REPORT INFORMATION
  Report Type: Report from Study
  Country: AT (occurrence: AT)
  Receive Date: 20130315
  Receipt Date: 20130321
  Transmission Date: 20140127
  Serious: Yes (Other)
  Sender: FDA-Public Use
  Company Number: AT-ABBOTT-13P-009-1061657-00

PATIENT
  Sex: Male

DRUGS (2)
  1. TRENANTONE [Suspect]
     Indication: PROSTATE CANCER
     Route: 058
     Dates: start: 201202
  2. BICALUTAMID [Concomitant]
     Indication: PROSTATIC SPECIFIC ANTIGEN INCREASED

REACTIONS (1)
  - Metastases to bone [Not Recovered/Not Resolved]
